FAERS Safety Report 8381132-2 (Version None)
Quarter: 2012Q2

REPORT INFORMATION
  Report Type: 
  Country: None (occurrence: None)
  Receive Date: 20120523
  Receipt Date: 20120521
  Transmission Date: 20120825
  Serious: Yes (Hospitalization)
  Sender: FDA-Public Use
  Company Number: US-GILEAD-2012-0054156

PATIENT
  Sex: Female

DRUGS (12)
  1. ADCIRCA [Concomitant]
  2. LISINOPRIL [Concomitant]
  3. SOTALOL HCL [Concomitant]
  4. MUCOMYST [Concomitant]
  5. PROTONIX [Concomitant]
  6. QVAR 40 [Concomitant]
  7. ASPIRIN [Concomitant]
  8. LETAIRIS [Suspect]
     Indication: PULMONARY HYPERTENSION
     Dosage: 5 MG, UNK
     Route: 048
     Dates: start: 20120207, end: 20120424
  9. LETAIRIS [Suspect]
     Indication: HEART DISEASE CONGENITAL
  10. ALBUTEROL [Concomitant]
  11. FUROSEMIDE [Concomitant]
  12. PENICILLIN V [Concomitant]

REACTIONS (2)
  - MENINGITIS [None]
  - HYPOTENSION [None]
